FAERS Safety Report 5451828-0 (Version None)
Quarter: 2007Q3

REPORT INFORMATION
  Report Type: 
  Country: None (occurrence: None)
  Receive Date: 20070806
  Receipt Date: 20070321
  Transmission Date: 20080115
  Serious: Yes (Other)
  Sender: FDA-Public Use
  Company Number: 35410

PATIENT
  Age: 53 Year
  Sex: Female
  Weight: 63.5036 kg

DRUGS (3)
  1. MIDAZOLAM HCL [Suspect]
     Indication: ENDOSCOPY
     Dosage: 5 MG/IV
     Dates: start: 20070321
  2. MIDAZOLAM HCL [Suspect]
     Indication: SEDATION
     Dosage: 5 MG/IV
     Dates: start: 20070321
  3. DEMEROL [Concomitant]

REACTIONS (2)
  - DRUG INEFFECTIVE [None]
  - INJECTION SITE REACTION [None]
